FAERS Safety Report 9332428 (Version 1)
Quarter: 2013Q2

REPORT INFORMATION
  Report Type: Spontaneous
  Country: US (occurrence: None)
  Receive Date: 20130603
  Receipt Date: 20130603
  Transmission Date: 20140414
  Serious: Yes (Death)
  Sender: FDA-Public Use
  Company Number: ADE13-012

PATIENT
  Age: 62 Year
  Sex: Female
  Weight: 58 kg

DRUGS (11)
  1. HEPARIN SODIUM [Suspect]
     Indication: EMBOLISM
     Dosage: 30,000 U ONCE
     Route: 042
     Dates: start: 20130515
  2. HEPARIN [Concomitant]
  3. SERTRALINE [Concomitant]
  4. WARFARIN [Concomitant]
  5. CALCIUM CARBONATE [Concomitant]
  6. ACETAMINOPHEN [Concomitant]
  7. MULTIVITAMIN [Concomitant]
  8. RANITIDINE [Concomitant]
  9. ASPIRIN [Concomitant]
  10. CLOPIDOGREL [Concomitant]
  11. ENOXAPARIN [Concomitant]

REACTIONS (3)
  - Haemorrhage intracranial [None]
  - Brain herniation [None]
  - Incorrect dose administered [None]
